FAERS Safety Report 8493816-6 (Version None)
Quarter: 2012Q3

REPORT INFORMATION
  Report Type: 
  Country: None (occurrence: None)
  Receive Date: 20120706
  Receipt Date: 20120628
  Transmission Date: 20120928
  Serious: Yes (Hospitalization)
  Sender: FDA-Public Use
  Company Number: US-ABBOTT-12P-163-0951323-00

PATIENT
  Sex: Female
  Weight: 59.02 kg

DRUGS (10)
  1. CALCIUM [Concomitant]
     Indication: PRODUCT USED FOR UNKNOWN INDICATION
     Route: 048
     Dates: start: 20100603, end: 20110115
  2. BETAMETHASONE [Concomitant]
     Indication: MATERNAL THERAPY TO ENHANCE FOETAL LUNG MATURITY
     Route: 050
     Dates: start: 20110112, end: 20110113
  3. FOLIC ACID [Concomitant]
     Route: 048
     Dates: start: 20100915, end: 20110115
  4. HUMIRA [Suspect]
     Indication: RHEUMATOID ARTHRITIS
     Route: 050
     Dates: start: 20100603, end: 20110115
  5. CAFFEINE [Concomitant]
     Dosage: 2 SERVINGS DAILY
     Route: 048
     Dates: start: 20110102, end: 20110115
  6. FOLIC ACID [Concomitant]
     Indication: PRODUCT USED FOR UNKNOWN INDICATION
     Route: 048
     Dates: start: 20100603, end: 20100914
  7. MULTI-VITAMINS [Concomitant]
     Indication: PRODUCT USED FOR UNKNOWN INDICATION
     Route: 048
     Dates: start: 20100603, end: 20110115
  8. INFLUENZA VACCINE [Concomitant]
     Indication: PRODUCT USED FOR UNKNOWN INDICATION
     Route: 050
     Dates: start: 20101018, end: 20101018
  9. COLACE [Concomitant]
     Indication: CONSTIPATION PROPHYLAXIS
     Route: 048
     Dates: start: 20110112, end: 20110113
  10. CAFFEINE [Concomitant]
     Indication: PRODUCT USED FOR UNKNOWN INDICATION
     Dosage: 1 SERVING DAILY, SODA (COKE)
     Route: 048
     Dates: start: 20100603, end: 20110101

REACTIONS (10)
  - HAEMORRHAGE [None]
  - HEADACHE [None]
  - INSOMNIA [None]
  - HERPES VIRUS INFECTION [None]
  - DYSPEPSIA [None]
  - PRE-ECLAMPSIA [None]
  - NAUSEA [None]
  - COUGH [None]
  - MIGRAINE [None]
  - NASOPHARYNGITIS [None]
